FAERS Safety Report 10974307 (Version 1)
Quarter: 2015Q2

REPORT INFORMATION
  Report Type: Spontaneous
  Country: BR (occurrence: BR)
  Receive Date: 20150401
  Receipt Date: 20150401
  Transmission Date: 20150821
  Serious: Yes (Hospitalization, Other)
  Sender: FDA-Public Use
  Company Number: BR-PFIZER INC-2015109071

PATIENT
  Sex: Female

DRUGS (1)
  1. EVANOR [Suspect]
     Active Substance: ETHINYL ESTRADIOL\LEVONORGESTREL
     Indication: HAEMOGLOBIN DECREASED
     Dosage: UNK

REACTIONS (5)
  - Cerebral venous thrombosis [Unknown]
  - Off label use [Unknown]
  - Eye burns [Unknown]
  - Asthenia [Unknown]
  - Stevens-Johnson syndrome [Unknown]
